FAERS Safety Report 9665439 (Version 1)
Quarter: 2013Q4

REPORT INFORMATION
  Report Type: Spontaneous
  Country: US (occurrence: None)
  Receive Date: 20131031
  Receipt Date: 20131031
  Transmission Date: 20140711
  Serious: No
  Sender: FDA-Public Use
  Company Number: None

PATIENT
  Sex: 0

DRUGS (1)
  1. SPIRIVA [Suspect]

REACTIONS (8)
  - Headache [None]
  - Tinnitus [None]
  - Dyspepsia [None]
  - Eructation [None]
  - Eructation [None]
  - Oropharyngeal pain [None]
  - Cough [None]
  - Blood glucose abnormal [None]
